FAERS Safety Report 7456926-8 (Version None)
Quarter: 2011Q1

REPORT INFORMATION
  Report Type: 
  Country: None (occurrence: None)
  Receive Date: 20110302
  Receipt Date: 20110121
  Transmission Date: 20110831
  Serious: Yes (Hospitalization)
  Sender: FDA-Public Use
  Company Number: 007051

PATIENT
  Sex: Female
  Weight: 100.7 kg

DRUGS (3)
  1. APO-CIPROFLOX [Concomitant]
  2. PREDNISONE TAB [Concomitant]
  3. CIMZIA [Suspect]
     Indication: CROHN'S DISEASE
     Dosage: SUBCUTANEOUS
     Route: 058
     Dates: start: 20090801

REACTIONS (1)
  - LARGE INTESTINAL OBSTRUCTION [None]
